FAERS Safety Report 9439173 (Version 2)
Quarter: 2013Q3

REPORT INFORMATION
  Report Type: Spontaneous
  Country: US (occurrence: US)
  Receive Date: 20130802
  Receipt Date: 20130830
  Transmission Date: 20140515
  Serious: No
  Sender: FDA-Public Use
  Company Number: US-009507513-1308USA001236

PATIENT
  Age: 67 Year
  Sex: Male

DRUGS (4)
  1. CARBIDOPA (+) LEVODOPA [Suspect]
     Indication: PARKINSON^S DISEASE
     Dosage: 3 DF, QD
     Route: 048
  2. PRAMIPEXOLE [Suspect]
     Dosage: 4.5 MG, QD
     Route: 048
  3. AMPHETAMINE [Suspect]
     Indication: SOMNOLENCE
     Dosage: 10 MG, UNK
  4. DARIFENACIN [Concomitant]
     Dosage: 15 MG, UNK

REACTIONS (2)
  - Illusion [Recovered/Resolved]
  - Delusion [Not Recovered/Not Resolved]
